FAERS Safety Report 7438210-1 (Version None)
Quarter: 2011Q2

REPORT INFORMATION
  Report Type: 
  Country: None (occurrence: None)
  Receive Date: 20110426
  Receipt Date: 20110128
  Transmission Date: 20111010
  Serious: Yes (Hospitalization, Other)
  Sender: FDA-Public Use
  Company Number: US-BAYER-201040645NA

PATIENT
  Age: 48 Year
  Sex: Female
  Weight: 72 kg

DRUGS (5)
  1. OCELLA [Suspect]
     Indication: ACNE
  2. MOTRIN [Concomitant]
  3. YAZ [Suspect]
     Indication: ACNE
  4. YASMIN [Suspect]
     Indication: ACNE
     Dosage: UNK
     Dates: start: 20030101, end: 20040101
  5. ASCORBIC ACID [Concomitant]

REACTIONS (10)
  - VENOUS INSUFFICIENCY [None]
  - THROMBOSIS [None]
  - VENOUS OCCLUSION [None]
  - PAIN [None]
  - SKIN ULCER [None]
  - CONTUSION [None]
  - SPIDER VEIN [None]
  - DEEP VEIN THROMBOSIS [None]
  - INJURY [None]
  - OEDEMA [None]
